FAERS Safety Report 16756926 (Version 1)
Quarter: 2019Q3

REPORT INFORMATION
  Report Type: Spontaneous
  Country: CA (occurrence: CA)
  Receive Date: 20190829
  Receipt Date: 20190829
  Transmission Date: 20191005
  Serious: Yes (Hospitalization, Congenital Anomaly)
  Sender: FDA-Public Use
  Company Number: CA-TEVA-2019-CA-1099518

PATIENT
  Age: 31 Year
  Sex: Male

DRUGS (3)
  1. CYCLOMEN [Concomitant]
     Active Substance: DANAZOL
     Dosage: 50 MILLIGRAM DAILY;
     Route: 048
  2. ICATIBANT ACETATE [Suspect]
     Active Substance: ICATIBANT ACETATE
     Indication: HEREDITARY ANGIOEDEMA
     Route: 058
  3. MORPHINE SULFATE. [Suspect]
     Active Substance: MORPHINE SULFATE
     Indication: PAIN
     Route: 065

REACTIONS (5)
  - Hangover [Recovered/Resolved]
  - Hereditary angioedema [Recovered/Resolved]
  - Unevaluable event [Recovered/Resolved]
  - Headache [Recovered/Resolved]
  - Withdrawal syndrome [Recovered/Resolved]
